FAERS Safety Report 5329502-0 (Version None)
Quarter: 2007Q1

REPORT INFORMATION
  Report Type: 
  Country: None (occurrence: None)
  Receive Date: 20070223
  Receipt Date: 20060210
  Transmission Date: 20070707
  Serious: Yes (Other)
  Sender: FDA-Public Use
  Company Number: WAES 0602USA02711

PATIENT
  Age: 52 Year
  Sex: Female
  Weight: 61.6892 kg

DRUGS (5)
  1. ZOCOR [Suspect]
     Indication: BLOOD CHOLESTEROL DECREASED
     Dosage: 80 MG/DAILY/PO
     Route: 048
     Dates: start: 20040118, end: 20050826
  2. ZOCOR [Suspect]
     Indication: BLOOD TRIGLYCERIDES
     Dosage: 80 MG/DAILY/PO
     Route: 048
     Dates: start: 20040118, end: 20050826
  3. ZOCOR [Suspect]
     Indication: BLOOD CHOLESTEROL DECREASED
     Dosage: 80 MG/DAILY/PO
     Route: 048
     Dates: start: 20050926, end: 20060123
  4. ZOCOR [Suspect]
     Indication: BLOOD TRIGLYCERIDES
     Dosage: 80 MG/DAILY/PO
     Route: 048
     Dates: start: 20050926, end: 20060123
  5. NIACIN [Concomitant]

REACTIONS (4)
  - ALANINE AMINOTRANSFERASE INCREASED [None]
  - ASPARTATE AMINOTRANSFERASE INCREASED [None]
  - MYOPATHY [None]
  - RHABDOMYOLYSIS [None]
